FAERS Safety Report 6341475-0 (Version None)
Quarter: 2009Q3

REPORT INFORMATION
  Report Type: 
  Country: None (occurrence: None)
  Receive Date: 20090904
  Receipt Date: 20090824
  Transmission Date: 20100115
  Serious: Yes (Other)
  Sender: FDA-Public Use
  Company Number: DE-PFIZER INC-2009238601

PATIENT
  Age: 22 Year

DRUGS (1)
  1. ZOLOFT [Suspect]
     Indication: DEPRESSION
     Dosage: 50MG/DAY
     Route: 048
     Dates: start: 20090623, end: 20090630

REACTIONS (1)
  - SUDDEN HEARING LOSS [None]
